FAERS Safety Report 10448188 (Version 1)
Quarter: 2014Q3

REPORT INFORMATION
  Report Type: Spontaneous
  Country: AT (occurrence: AT)
  Receive Date: 20140911
  Receipt Date: 20140911
  Transmission Date: 20150326
  Serious: Yes (Other)
  Sender: FDA-Public Use
  Company Number: AT-GLAXOSMITHKLINE-B1031896A

PATIENT
  Sex: Female

DRUGS (2)
  1. PSYCHOTROPIC DRUGS [Concomitant]
     Indication: PRODUCT USED FOR UNKNOWN INDICATION
  2. WELLBUTRIN [Suspect]
     Active Substance: BUPROPION HYDROCHLORIDE
     Indication: PRODUCT USED FOR UNKNOWN INDICATION

REACTIONS (1)
  - Interstitial lung disease [Unknown]
